FAERS Safety Report 8889353 (Version 1)
Quarter: 2012Q4

REPORT INFORMATION
  Report Type: Spontaneous
  Country: US (occurrence: None)
  Receive Date: 20121102
  Receipt Date: 20121102
  Transmission Date: 20130627
  Serious: Yes (Other)
  Sender: FDA-Public Use
  Company Number: None

PATIENT
  Age: 33 Year
  Sex: Male
  Weight: 115.21 kg

DRUGS (2)
  1. NAPROXEN [Suspect]
     Indication: INFLAMATION
     Dosage: 500MG 1 PILL TWICE DAILY PO
     Route: 048
     Dates: start: 20121005, end: 20121008
  2. NAPROXEN [Suspect]
     Indication: AUTOMOBILE ACCIDENT
     Dosage: 500MG 1 PILL TWICE DAILY PO
     Route: 048
     Dates: start: 20121005, end: 20121008

REACTIONS (3)
  - Dysuria [None]
  - Polyuria [None]
  - Oliguria [None]
